FAERS Safety Report 8556433-5 (Version None)
Quarter: 2012Q3

REPORT INFORMATION
  Report Type: 
  Country: None (occurrence: None)
  Receive Date: 20120801
  Receipt Date: 20120727
  Transmission Date: 20120928
  Serious: Yes (Other)
  Sender: FDA-Public Use
  Company Number: PHHY2012JP045501

PATIENT
  Age: 92 Year
  Sex: Female

DRUGS (4)
  1. PHENYTOIN SODIUM CAP [Concomitant]
     Indication: EPILEPSY
     Route: 048
  2. EXELON [Suspect]
     Dosage: 4.5MG DAILY
     Route: 062
     Dates: start: 20120531
  3. EXELON [Suspect]
     Dosage: 9.5 MG DAILY
     Route: 062
     Dates: start: 20120601
  4. EXELON [Suspect]
     Indication: DEMENTIA ALZHEIMER'S TYPE
     Dosage: 4.5MG DAILY
     Route: 062
     Dates: start: 20120522

REACTIONS (3)
  - WRONG TECHNIQUE IN DRUG USAGE PROCESS [None]
  - NYSTAGMUS [None]
  - FOOD AVERSION [None]
